FAERS Safety Report 6136668-1 (Version None)
Quarter: 2009Q1

REPORT INFORMATION
  Report Type: 
  Country: None (occurrence: None)
  Receive Date: 20090330
  Receipt Date: 20090323
  Transmission Date: 20090719
  Serious: Yes (Life-Threatening)
  Sender: FDA-Public Use
  Company Number: B0567529A

PATIENT
  Sex: Female

DRUGS (1)
  1. WELLBUTRIN XR [Suspect]
     Dosage: 300MG PER DAY
     Route: 048
     Dates: start: 20090101

REACTIONS (1)
  - SUICIDE ATTEMPT [None]
